FAERS Safety Report 23876928 (Version 1)
Quarter: 2024Q2

REPORT INFORMATION
  Report Type: Spontaneous
  Country: US (occurrence: US)
  Receive Date: 20240521
  Receipt Date: 20240521
  Transmission Date: 20240716
  Serious: No
  Sender: FDA-Public Use
  Company Number: US-STRIDES ARCOLAB LIMITED-2023SP007293

PATIENT
  Sex: Female
  Weight: 95.238 kg

DRUGS (1)
  1. POLYETHYLENE GLYCOL 3350\POTASSIUM CHLORIDE\SODIUM BICARBONATE\SODIUM [Suspect]
     Active Substance: POLYETHYLENE GLYCOL 3350\POTASSIUM CHLORIDE\SODIUM BICARBONATE\SODIUM CHLORIDE
     Indication: Colonoscopy
     Dosage: UNK (8 OZ EVERY 15 MINUTE) (SOLUTION)
     Route: 048
     Dates: start: 20230511, end: 20230511

REACTIONS (3)
  - Illness [Not Recovered/Not Resolved]
  - Blood pressure increased [Unknown]
  - Speech disorder [Unknown]
